FAERS Safety Report 8353626-7 (Version None)
Quarter: 2012Q2

REPORT INFORMATION
  Report Type: 
  Country: None (occurrence: None)
  Receive Date: 20120511
  Receipt Date: 20110815
  Transmission Date: 20120825
  Serious: No
  Sender: FDA-Public Use
  Company Number: US-GLAXOSMITHKLINE-A0941874A

PATIENT
  Sex: Female

DRUGS (1)
  1. TYKERB [Suspect]
     Indication: PRODUCT USED FOR UNKNOWN INDICATION
     Dosage: 6TAB PER DAY
     Route: 048
     Dates: start: 20110810

REACTIONS (3)
  - MALAISE [None]
  - INSOMNIA [None]
  - MUSCLE SPASMS [None]
